FAERS Safety Report 22588832 (Version 1)
Quarter: 2023Q2

REPORT INFORMATION
  Report Type: Spontaneous
  Country: CN (occurrence: CN)
  Receive Date: 20230612
  Receipt Date: 20230612
  Transmission Date: 20230721
  Serious: Yes (Other)
  Sender: FDA-Public Use
  Company Number: CN-SA-SAC20230608001377

PATIENT
  Age: 79 Year
  Sex: Female
  Weight: 53 kg

DRUGS (6)
  1. ENOXAPARIN SODIUM [Suspect]
     Active Substance: ENOXAPARIN SODIUM
     Indication: Venous thrombosis limb
     Dosage: 0.4 ML, QD
     Route: 058
     Dates: start: 20230517, end: 20230519
  2. ENOXAPARIN SODIUM [Suspect]
     Active Substance: ENOXAPARIN SODIUM
     Dosage: 0.4 ML, BID
     Route: 058
     Dates: start: 20230520, end: 20230522
  3. ATORVASTATIN CALCIUM [Suspect]
     Active Substance: ATORVASTATIN CALCIUM
     Indication: Lipids
     Dosage: 40MG, QD
     Route: 048
     Dates: start: 20230506, end: 20230605
  4. HEPARIN SODIUM [Suspect]
     Active Substance: HEPARIN SODIUM
     Indication: Venous thrombosis limb
     Dosage: 0.3 ML, QD
     Route: 058
     Dates: start: 20230513, end: 20230514
  5. HEPARIN SODIUM [Suspect]
     Active Substance: HEPARIN SODIUM
     Dosage: 0.3 ML, BID
     Route: 058
     Dates: start: 20230515, end: 20230515
  6. HEPARIN SODIUM [Suspect]
     Active Substance: HEPARIN SODIUM
     Dosage: 0.3 ML, TOTAL
     Route: 058
     Dates: start: 20230516, end: 20230516

REACTIONS (2)
  - Deep vein thrombosis [Unknown]
  - Hepatic enzyme increased [Unknown]

NARRATIVE: CASE EVENT DATE: 20230512
